FAERS Safety Report 11735889 (Version 3)
Quarter: 2016Q3

REPORT INFORMATION
  Report Type: Spontaneous
  Country: US (occurrence: US)
  Receive Date: 20151113
  Receipt Date: 20160830
  Transmission Date: 20161109
  Serious: Yes (Other)
  Sender: FDA-Public Use
  Company Number: US-JNJFOC-20151008531

PATIENT
  Age: 24 Year
  Sex: Male

DRUGS (3)
  1. RISPERDAL [Suspect]
     Active Substance: RISPERIDONE
     Indication: SPINAL MUSCULAR ATROPHY
     Route: 048
     Dates: start: 20080301, end: 20080315
  2. RISPERDAL [Suspect]
     Active Substance: RISPERIDONE
     Indication: SPINAL MUSCULAR ATROPHY
     Route: 048
     Dates: start: 20080727
  3. RISPERDAL [Suspect]
     Active Substance: RISPERIDONE
     Indication: SPINAL MUSCULAR ATROPHY
     Route: 048
     Dates: start: 20080829, end: 20080929

REACTIONS (3)
  - Off label use [Unknown]
  - Gynaecomastia [Unknown]
  - Product use issue [Unknown]

NARRATIVE: CASE EVENT DATE: 20080301
